FAERS Safety Report 8791415 (Version 1)
Quarter: 2012Q4

REPORT INFORMATION
  Report Type: Spontaneous
  Country: US (occurrence: None)
  Receive Date: 20120912
  Receipt Date: 20120912
  Transmission Date: 20130627
  Serious: Yes (Other)
  Sender: FDA-Public Use
  Company Number: US-ZYDUS-000679

PATIENT
  Age: 69 Year
  Sex: Male

DRUGS (1)
  1. AMIODARONE [Suspect]

REACTIONS (5)
  - Hypothyroidism [None]
  - Cardiac tamponade [None]
  - Blood pressure decreased [None]
  - Cardiomegaly [None]
  - Pericardial effusion [None]
